FAERS Safety Report 5457598-4 (Version None)
Quarter: 2007Q3

REPORT INFORMATION
  Report Type: 
  Country: None (occurrence: None)
  Receive Date: 20070918
  Receipt Date: 20070907
  Transmission Date: 20080115
  Serious: No
  Sender: FDA-Public Use
  Company Number: US-BOEHRINGER INGELHEIM PHARMACEUTICALS, INC.-2007-BP-17767BP

PATIENT
  Sex: Female

DRUGS (9)
  1. SPIRIVA [Suspect]
     Indication: CHRONIC OBSTRUCTIVE PULMONARY DISEASE
     Route: 055
     Dates: start: 20061001
  2. SPIRIVA [Suspect]
     Indication: EMPHYSEMA
  3. COUMADIN [Concomitant]
  4. SYNTHROID [Concomitant]
  5. HYDROCHLOROTHIAZIDE [Concomitant]
  6. VALIUM [Concomitant]
  7. DIOVAN [Concomitant]
  8. PAMELOR [Concomitant]
  9. CITRACAL [Concomitant]

REACTIONS (4)
  - APHONIA [None]
  - DYSPHONIA [None]
  - GLAUCOMA [None]
  - INTRAOCULAR PRESSURE INCREASED [None]
